FAERS Safety Report 6966804-6 (Version None)
Quarter: 2010Q3

REPORT INFORMATION
  Report Type: 
  Country: None (occurrence: None)
  Receive Date: 20100906
  Receipt Date: 20100823
  Transmission Date: 20110219
  Serious: Yes (Other)
  Sender: FDA-Public Use
  Company Number: PHFR2010GB00491

PATIENT
  Sex: Female
  Weight: 43.5 kg

DRUGS (9)
  1. GLEEVEC [Suspect]
     Indication: CHRONIC MYELOID LEUKAEMIA
     Dosage: UNK
     Route: 048
  2. GLEEVEC [Suspect]
     Dosage: 200 MG/DAY
     Route: 065
  3. SERETIDE [Concomitant]
     Dosage: 1 DF, BID
  4. ACETAMINOPHEN AND CODEINE PHOSPHATE [Concomitant]
     Dosage: UNK
     Route: 048
  5. ADCAL-D3 [Concomitant]
     Dosage: UNK
     Route: 048
  6. LANSOPRAZOLE [Concomitant]
     Dosage: 30 MG, QD
     Route: 048
  7. LISINOPRIL [Concomitant]
     Dosage: 20 MG, QD
     Route: 048
  8. CANDESARTAN CILEXETIL [Concomitant]
     Dosage: 8 MG, QD
     Route: 048
  9. ALENDRONATE SODIUM [Concomitant]
     Dosage: 70 MG, QW
     Route: 048

REACTIONS (3)
  - ANAEMIA [None]
  - COLITIS [None]
  - URINARY TRACT INFECTION [None]
